FAERS Safety Report 4758561-9 (Version None)
Quarter: 2005Q3

REPORT INFORMATION
  Report Type: 
  Country: None (occurrence: None)
  Receive Date: 20050901
  Receipt Date: 20050808
  Transmission Date: 20060218
  Serious: Yes (Life-Threatening, Hospitalization)
  Sender: FDA-Public Use
  Company Number: JP-SP-2005-01523

PATIENT
  Age: 78 Year
  Sex: Female

DRUGS (2)
  1. IMMUCYST [Suspect]
     Indication: BLADDER CANCER
     Route: 043
     Dates: start: 20050426, end: 20050621
  2. IMMUCYST [Suspect]
     Route: 043
     Dates: start: 20050426, end: 20050621

REACTIONS (8)
  - ANAEMIA [None]
  - BLADDER CANCER [None]
  - CONDITION AGGRAVATED [None]
  - HAEMATURIA [None]
  - HYDRONEPHROSIS [None]
  - POLLAKIURIA [None]
  - RENAL FAILURE [None]
  - URINARY INCONTINENCE [None]
